FAERS Safety Report 9414257 (Version 2)
Quarter: 2013Q3

REPORT INFORMATION
  Report Type: Report from Study
  Country: BR (occurrence: BR)
  Receive Date: 20130723
  Receipt Date: 20130726
  Transmission Date: 20140515
  Serious: Yes (Death)
  Sender: FDA-Public Use
  Company Number: BR-ROCHE-1230413

PATIENT
  Age: 51 Year
  Sex: Female
  Weight: 56 kg

DRUGS (5)
  1. BEVACIZUMAB [Suspect]
     Indication: OVARIAN CANCER
     Dosage: LAST DOSE PRIOR TO SAE ON 09/MAY/2013.
     Route: 042
     Dates: start: 20111228, end: 20130520
  2. TAXOL [Suspect]
     Indication: OVARIAN CANCER
     Dosage: LAST DOSE PRIOR TO SAE ON 05/JUN/2012
     Route: 042
     Dates: start: 20111228
  3. CARBOPLATIN [Suspect]
     Indication: OVARIAN CANCER
     Dosage: LAST DOSE PRIOR TO SAE ON 05/JUN/2012
     Route: 042
     Dates: start: 20111228
  4. CAPTOPRIL [Concomitant]
     Route: 065
     Dates: start: 20130423, end: 20130520
  5. HYDROCHLOROTHIAZIDE [Concomitant]
     Route: 065
     Dates: start: 20120628, end: 20130520

REACTIONS (1)
  - Death [Fatal]
